FAERS Safety Report 9054591 (Version 2)
Quarter: 2013Q1

REPORT INFORMATION
  Report Type: Spontaneous
  Country: US (occurrence: US)
  Receive Date: 20130208
  Receipt Date: 20130208
  Transmission Date: 20140127
  Serious: No
  Sender: FDA-Public Use
  Company Number: US-ASTRAZENECA-2005UW09160

PATIENT
  Age: 73 Year
  Sex: Female
  Weight: 48.5 kg

DRUGS (9)
  1. NEXIUM [Suspect]
     Indication: GASTROOESOPHAGEAL REFLUX DISEASE
     Route: 048
     Dates: start: 2001
  2. NEXIUM [Suspect]
     Indication: GASTRITIS
     Route: 048
     Dates: start: 2001
  3. BIAXIN [Suspect]
     Indication: SINUSITIS
     Route: 065
  4. LIBRIUM [Concomitant]
     Route: 065
  5. ENTEX LA [Concomitant]
  6. HIGH BLOOD PRESSURE MEDICATION [Concomitant]
  7. ASA [Concomitant]
  8. THENAVENT [Concomitant]
  9. VITAMIN B12 [Concomitant]

REACTIONS (6)
  - Tongue discolouration [Unknown]
  - Rash [Unknown]
  - Vitamin B12 deficiency [Unknown]
  - Bronchitis [Unknown]
  - Malaise [Unknown]
  - Sinusitis [Unknown]
